FAERS Safety Report 8398728 (Version 3)
Quarter: 2013Q1

REPORT INFORMATION
  Report Type: Spontaneous
  Country: US (occurrence: US)
  Receive Date: 20120209
  Receipt Date: 20130118
  Transmission Date: 20140127
  Serious: Yes (Other)
  Sender: FDA-Public Use
  Company Number: US-ASTRAZENECA-2012SE06267

PATIENT
  Age: 83 Year
  Sex: Female

DRUGS (5)
  1. ATACAND [Suspect]
     Indication: CARDIAC DISORDER
     Route: 048
  2. ATACAND [Suspect]
     Indication: MYOCARDIAL INFARCTION
     Route: 048
  3. SEVEN OTHER MEDICATIONS [Concomitant]
     Indication: ANEURYSM
  4. SEVEN OTHER MEDICATIONS [Concomitant]
     Indication: CARDIAC FAILURE CONGESTIVE
  5. SEVEN OTHER MEDICATIONS [Concomitant]
     Indication: CARDIAC DISORDER

REACTIONS (8)
  - Cerebrovascular accident [Unknown]
  - Transient ischaemic attack [Unknown]
  - Eye injury [Unknown]
  - Nerve injury [Unknown]
  - Myocardial infarction [Unknown]
  - Visual acuity reduced [Unknown]
  - Eyelid pain [Unknown]
  - Ophthalmoplegia [Unknown]
